FAERS Safety Report 21244296 (Version 1)
Quarter: 2022Q3

REPORT INFORMATION
  Report Type: Spontaneous
  Country: MX (occurrence: MX)
  Receive Date: 20220823
  Receipt Date: 20220823
  Transmission Date: 20221027
  Serious: Yes (Life-Threatening, Disabling, Other)
  Sender: FDA-Public Use
  Company Number: MX-NOVOPROD-949591

PATIENT
  Age: 8 Month
  Sex: Male
  Weight: 2.5 kg

DRUGS (1)
  1. NOVOLIN N [Suspect]
     Active Substance: INSULIN HUMAN
     Indication: Type 1 diabetes mellitus
     Dosage: UNK
     Route: 064

REACTIONS (7)
  - Infantile spasms [Unknown]
  - Irregular breathing [Unknown]
  - Hyperbilirubinaemia [Unknown]
  - Sepsis neonatal [Unknown]
  - Blood glucose decreased [Unknown]
  - Premature baby [Unknown]
  - Foetal exposure during pregnancy [Recovered/Resolved]
